FAERS Safety Report 6999045-7 (Version None)
Quarter: 2010Q3

REPORT INFORMATION
  Report Type: 
  Country: None (occurrence: None)
  Receive Date: 20100920
  Receipt Date: 20100908
  Transmission Date: 20110219
  Serious: Yes (Hospitalization)
  Sender: FDA-Public Use
  Company Number: US-ELI_LILLY_AND_COMPANY-US200910008014

PATIENT
  Sex: Female

DRUGS (12)
  1. FORTEO [Suspect]
     Dosage: UNK, UNK
  2. PLAVIX [Concomitant]
  3. DIGOXIN [Concomitant]
  4. CARDIZEM [Concomitant]
  5. SYNTHROID [Concomitant]
  6. PROTONIX [Concomitant]
  7. COUMADIN [Concomitant]
  8. LIBRAX [Concomitant]
  9. MULTI-VITAMIN [Concomitant]
  10. CALCIUM [Concomitant]
  11. VITAMIN D [Concomitant]
  12. MIRALAX [Concomitant]
     Dosage: UNK, AS NEEDED

REACTIONS (5)
  - DISORIENTATION [None]
  - FATIGUE [None]
  - HOSPITALISATION [None]
  - PNEUMONIA [None]
  - SOMNOLENCE [None]
